FAERS Safety Report 6603907-X (Version None)
Quarter: 2010Q1

REPORT INFORMATION
  Report Type: 
  Country: None (occurrence: None)
  Receive Date: 20100226
  Receipt Date: 20090521
  Transmission Date: 20100710
  Serious: No
  Sender: FDA-Public Use
  Company Number: A0773042A

PATIENT
  Age: 41 Year
  Sex: Female
  Weight: 78.2 kg

DRUGS (9)
  1. LAMICTAL CD [Suspect]
     Indication: DRUG USE FOR UNKNOWN INDICATION
     Dosage: 200MG UNKNOWN
     Route: 048
     Dates: start: 20031001
  2. PAXIL [Suspect]
     Indication: DEPRESSION
     Route: 048
     Dates: start: 19960101
  3. UNKNOWN [Concomitant]
     Route: 048
     Dates: start: 20090401
  4. ALLEGRA [Concomitant]
     Indication: MULTIPLE ALLERGIES
  5. NASONEX [Concomitant]
     Indication: MULTIPLE ALLERGIES
  6. VITAMIN D [Concomitant]
  7. ADVAIR DISKUS 100/50 [Concomitant]
  8. ALBUTEROL [Concomitant]
  9. VITAMIN B1 TAB [Concomitant]

REACTIONS (4)
  - HYPERMETROPIA [None]
  - PRESBYOPIA [None]
  - VISION BLURRED [None]
  - VISUAL IMPAIRMENT [None]
